FAERS Safety Report 6921660-7 (Version None)
Quarter: 2010Q3

REPORT INFORMATION
  Report Type: 
  Country: None (occurrence: None)
  Receive Date: 20100812
  Receipt Date: 20100803
  Transmission Date: 20110219
  Serious: Yes (Death)
  Sender: FDA-Public Use
  Company Number: US-JNJFOC-20100801838

PATIENT
  Sex: Male
  Weight: 75.75 kg

DRUGS (3)
  1. REMICADE [Suspect]
     Indication: CROHN'S DISEASE
     Dosage: 5 INFUSIONS
     Route: 042
  2. REMICADE [Suspect]
     Dosage: 57 INFUSIONS
     Route: 042
  3. REMICADE [Suspect]
     Dosage: 8 INFUSIONS PRIOR TO BASELINE
     Route: 042

REACTIONS (1)
  - CEREBROVASCULAR ACCIDENT [None]
